FAERS Safety Report 26093617 (Version 1)
Quarter: 2025Q4

REPORT INFORMATION
  Report Type: Spontaneous
  Country: US (occurrence: US)
  Receive Date: 20251126
  Receipt Date: 20251126
  Transmission Date: 20260118
  Serious: No
  Sender: LUNDBECK
  Company Number: US-LUNDBECK-DKLU4022133

PATIENT
  Age: 37 Year
  Sex: Female

DRUGS (1)
  1. VYEPTI [Suspect]
     Active Substance: EPTINEZUMAB-JJMR
     Indication: Migraine with aura
     Dosage: 100 MILLIGRAM
     Route: 041
     Dates: start: 20250911, end: 20251120

REACTIONS (3)
  - Drug ineffective [Recovered/Resolved]
  - Hypertension [Recovered/Resolved]
  - Migraine [Recovered/Resolved]

NARRATIVE: CASE EVENT DATE: 20250911
